FAERS Safety Report 6720584-8 (Version None)
Quarter: 2010Q2

REPORT INFORMATION
  Report Type: 
  Country: None (occurrence: None)
  Receive Date: 20100510
  Receipt Date: 20100427
  Transmission Date: 20101027
  Serious: Yes (Disabling, Other)
  Sender: FDA-Public Use
  Company Number: TRP_06938_2010

PATIENT
  Sex: Female

DRUGS (6)
  1. INFERGEN [Suspect]
     Indication: HEPATITIS C
     Dosage: 15 MCG
     Dates: start: 20100301
  2. RIBASPHERE [Suspect]
     Indication: HEPATITIS C
     Dosage: 600 MG BID
     Dates: start: 20100301
  3. LECITHIN [Concomitant]
  4. CALCIUM MAGNESIUM [Concomitant]
  5. VITAMIN E [Concomitant]
  6. STROVITE 1 (VITAMIN) [Concomitant]

REACTIONS (8)
  - ACTIVITIES OF DAILY LIVING IMPAIRED [None]
  - FAECAL INCONTINENCE [None]
  - FATIGUE [None]
  - FEAR [None]
  - LETHARGY [None]
  - MELAENA [None]
  - NAUSEA [None]
  - PANIC REACTION [None]
